FAERS Safety Report 6506921-8 (Version None)
Quarter: 2009Q4

REPORT INFORMATION
  Report Type: 
  Country: None (occurrence: None)
  Receive Date: 20091221
  Receipt Date: 20091214
  Transmission Date: 20100525
  Serious: Yes (Other)
  Sender: FDA-Public Use
  Company Number: US-ELI_LILLY_AND_COMPANY-US200912003453

PATIENT
  Sex: Male

DRUGS (8)
  1. HUMALOG [Suspect]
     Dosage: 6 U, EACH MORNING
     Dates: start: 20090601
  2. HUMALOG [Suspect]
     Dosage: 4 U, DAILY (1/D)
     Dates: start: 20090601
  3. HUMALOG [Suspect]
     Dosage: 6 U, EACH EVENING
     Dates: start: 20090601
  4. LANTUS [Concomitant]
  5. METFORMIN HCL [Concomitant]
     Dosage: 1000 MG, 2/D
  6. GLIMEPIRIDE [Concomitant]
     Dosage: 4 MG, 2/D
  7. QUINAPRIL [Concomitant]
     Dosage: 20 MG, DAILY (1/D)
  8. SIMVASTATIN [Concomitant]
     Dosage: 40 MG, DAILY (1/D)

REACTIONS (5)
  - DYSPNOEA [None]
  - NASAL CONGESTION [None]
  - SINUS HEADACHE [None]
  - SINUSITIS [None]
  - VOMITING [None]
